FAERS Safety Report 15234738 (Version 2)
Quarter: 2020Q2

REPORT INFORMATION
  Report Type: Spontaneous
  Country: US (occurrence: US)
  Receive Date: 20180803
  Receipt Date: 20200617
  Transmission Date: 20200713
  Serious: Yes (Other)
  Sender: FDA-Public Use
  Company Number: US-ASTRAZENECA-2018SE97123

PATIENT
  Sex: Male
  Weight: 90.7 kg

DRUGS (65)
  1. LABETALOL [Concomitant]
     Active Substance: LABETALOL\LABETALOL HYDROCHLORIDE
  2. CIPROFLOXACIN. [Concomitant]
     Active Substance: CIPROFLOXACIN
  3. KLOR-CON [Concomitant]
     Active Substance: POTASSIUM CHLORIDE
  4. PROCRIT [Concomitant]
     Active Substance: ERYTHROPOIETIN
  5. AMLODIPINE BESYLATE. [Concomitant]
     Active Substance: AMLODIPINE BESYLATE
  6. NYSTATIN-TRIAMCINOLONE [Concomitant]
  7. MICARDIS [Concomitant]
     Active Substance: TELMISARTAN
  8. ROCALTROL [Concomitant]
     Active Substance: CALCITRIOL
  9. PREVACID [Suspect]
     Active Substance: LANSOPRAZOLE
     Indication: GASTROOESOPHAGEAL REFLUX DISEASE
     Dosage: 30.0MG UNKNOWN
     Route: 065
  10. PREDISONE [Concomitant]
     Active Substance: PREDNISONE
  11. PEPCID [Concomitant]
     Active Substance: FAMOTIDINE
  12. PHOSLO [Concomitant]
     Active Substance: CALCIUM ACETATE
  13. VALTREX [Concomitant]
     Active Substance: VALACYCLOVIR HYDROCHLORIDE
  14. CARISOPRODOL. [Concomitant]
     Active Substance: CARISOPRODOL
  15. PROTONIX [Suspect]
     Active Substance: PANTOPRAZOLE SODIUM
     Indication: GASTROOESOPHAGEAL REFLUX DISEASE
     Route: 065
     Dates: start: 20021217, end: 20121218
  16. ZANTAC [Concomitant]
     Active Substance: RANITIDINE HYDROCHLORIDE
  17. TAMSULOSIN [Concomitant]
     Active Substance: TAMSULOSIN
  18. BENAZEPRIL [Concomitant]
     Active Substance: BENAZEPRIL HYDROCHLORIDE
  19. CALCITRIOL. [Concomitant]
     Active Substance: CALCITRIOL
  20. ACYCLOVIR. [Concomitant]
     Active Substance: ACYCLOVIR
  21. PROTONIX [Suspect]
     Active Substance: PANTOPRAZOLE SODIUM
     Indication: GASTROOESOPHAGEAL REFLUX DISEASE
     Dosage: 40.0MG UNKNOWN
     Route: 048
     Dates: start: 20080220
  22. FINASTERIDE. [Concomitant]
     Active Substance: FINASTERIDE
  23. FEXOFENADINE [Concomitant]
     Active Substance: FEXOFENADINE HYDROCHLORIDE
  24. FAMCICLOVIR. [Concomitant]
     Active Substance: FAMCICLOVIR
  25. CEPHALEXIN. [Concomitant]
     Active Substance: CEPHALEXIN
  26. DIPHENOXYLATE-ATROPINE [Concomitant]
     Active Substance: ATROPINE\DIPHENOXYLATE
  27. VIOXX [Concomitant]
     Active Substance: ROFECOXIB
  28. PROTONIX [Suspect]
     Active Substance: PANTOPRAZOLE SODIUM
     Indication: GASTROOESOPHAGEAL REFLUX DISEASE
     Dosage: 40.0MG UNKNOWN
     Route: 065
  29. MYFORTIC [Concomitant]
     Active Substance: MYCOPHENOLATE SODIUM
  30. DAILY-VITE [Concomitant]
  31. CALCIUM ACETATE. [Concomitant]
     Active Substance: CALCIUM ACETATE
  32. AVODART [Concomitant]
     Active Substance: DUTASTERIDE
  33. FLOMAX [Concomitant]
     Active Substance: TAMSULOSIN HYDROCHLORIDE
  34. PROMETHAZINE-CODEINE [Concomitant]
     Active Substance: CODEINE PHOSPHATE\PROMETHAZINE
  35. PENICILLIN [Concomitant]
     Active Substance: PENICILLIN
  36. FAMVIR [Concomitant]
     Active Substance: FAMCICLOVIR
  37. NEXIUM [Suspect]
     Active Substance: ESOMEPRAZOLE MAGNESIUM
     Indication: GASTROOESOPHAGEAL REFLUX DISEASE
     Route: 048
     Dates: start: 20021217, end: 20121218
  38. PROGRAF [Concomitant]
     Active Substance: TACROLIMUS
  39. SPIRONOLACTONE. [Concomitant]
     Active Substance: SPIRONOLACTONE
  40. HYDROCODONE-APAP [Concomitant]
     Active Substance: ACETAMINOPHEN\HYDROCODONE
  41. VALACYCLOVIR [Concomitant]
     Active Substance: VALACYCLOVIR HYDROCHLORIDE
  42. ZITHROMAX [Concomitant]
     Active Substance: AZITHROMYCIN DIHYDRATE
  43. CELEBREX [Concomitant]
     Active Substance: CELECOXIB
  44. NEXIUM [Suspect]
     Active Substance: ESOMEPRAZOLE MAGNESIUM
     Indication: GASTROOESOPHAGEAL REFLUX DISEASE
     Dosage: 40.0MG UNKNOWN
     Route: 048
  45. PREVACID [Suspect]
     Active Substance: LANSOPRAZOLE
     Indication: GASTROOESOPHAGEAL REFLUX DISEASE
     Route: 065
     Dates: start: 20021217, end: 20121218
  46. PROTONIX [Suspect]
     Active Substance: PANTOPRAZOLE SODIUM
     Indication: GASTROOESOPHAGEAL REFLUX DISEASE
     Dosage: GENERIC40.0MG UNKNOWN
     Route: 065
  47. ACETAMINOPHEN-COD [Concomitant]
     Active Substance: ACETAMINOPHEN\CODEINE PHOSPHATE
  48. ALLOPURINOL. [Concomitant]
     Active Substance: ALLOPURINOL
  49. CLOTRIMAZOLE/ BETAMET [Concomitant]
  50. PROPOXYPHEN [Concomitant]
  51. NEXIUM [Suspect]
     Active Substance: ESOMEPRAZOLE MAGNESIUM
     Indication: GASTROOESOPHAGEAL REFLUX DISEASE
     Dosage: 40.0MG UNKNOWN
     Route: 048
     Dates: start: 20120811
  52. PREVACID [Suspect]
     Active Substance: LANSOPRAZOLE
     Indication: GASTROOESOPHAGEAL REFLUX DISEASE
     Dosage: 30.0MG UNKNOWN
     Route: 048
     Dates: start: 20080111
  53. AMILODIPINE [Concomitant]
  54. HYDROCODONE [Concomitant]
     Active Substance: HYDROCODONE
  55. LEVAQUIN [Concomitant]
     Active Substance: LEVOFLOXACIN
  56. MINOXIDIL. [Concomitant]
     Active Substance: MINOXIDIL
  57. INDOMETHACIN. [Concomitant]
     Active Substance: INDOMETHACIN
  58. NASONEX [Concomitant]
     Active Substance: MOMETASONE FUROATE
  59. VICODIN [Concomitant]
     Active Substance: ACETAMINOPHEN\HYDROCODONE BITARTRATE
  60. SPIRONOLACTONE. [Concomitant]
     Active Substance: SPIRONOLACTONE
  61. GENTAMYCIN [Concomitant]
     Active Substance: GENTAMICIN
  62. PHOSPHORUS [Concomitant]
     Active Substance: PHOSPHORUS
  63. COZAAR [Concomitant]
     Active Substance: LOSARTAN POTASSIUM
  64. NEPHRO VITE RX [Concomitant]
     Active Substance: ASCORBIC ACID\BIOTIN\CALCIUM PANTOTHENATE\CYANOCOBALAMIN\FOLIC ACID\NIACINAMIDE\PYRIDOXINE HYDROCHLORIDE\RIBOFLAVIN\THIAMINE MONONITRATE
  65. CLINDAMYCIN. [Concomitant]
     Active Substance: CLINDAMYCIN

REACTIONS (4)
  - End stage renal disease [Unknown]
  - Acute kidney injury [Unknown]
  - Chronic kidney disease [Not Recovered/Not Resolved]
  - Renal failure [Unknown]
